FAERS Safety Report 5480662-0 (Version None)
Quarter: 2007Q4

REPORT INFORMATION
  Report Type: 
  Country: None (occurrence: None)
  Receive Date: 20071009
  Receipt Date: 20071004
  Transmission Date: 20080405
  Serious: Yes (Other)
  Sender: FDA-Public Use
  Company Number: CA-SP-2007-02415

PATIENT
  Age: 41 Year
  Sex: Female

DRUGS (3)
  1. INACTIVATED HUMAN RABIES VACCINE MERIEUX [Suspect]
     Indication: ACCIDENTAL EXPOSURE
     Route: 030
     Dates: start: 20060316
  2. IMOGAM RABIES [Suspect]
     Indication: ACCIDENTAL EXPOSURE
     Route: 065
     Dates: start: 20060316
  3. MARVELON [Concomitant]

REACTIONS (4)
  - DIARRHOEA [None]
  - HEADACHE [None]
  - NAUSEA [None]
  - PAIN IN EXTREMITY [None]
